FAERS Safety Report 6010296-0 (Version None)
Quarter: 2008Q4

REPORT INFORMATION
  Report Type: 
  Country: None (occurrence: None)
  Receive Date: 20081218
  Receipt Date: 20080502
  Transmission Date: 20090506
  Serious: No
  Sender: FDA-Public Use
  Company Number: A0727069A

PATIENT
  Age: 4 Year
  Sex: Female

DRUGS (1)
  1. FLOVENT [Suspect]
     Route: 055
     Dates: start: 20080101

REACTIONS (2)
  - CRYING [None]
  - PSYCHOMOTOR HYPERACTIVITY [None]
